FAERS Safety Report 6934560-3 (Version None)
Quarter: 2010Q3

REPORT INFORMATION
  Report Type: 
  Country: None (occurrence: None)
  Receive Date: 20100820
  Receipt Date: 20100811
  Transmission Date: 20110219
  Serious: Yes (Other)
  Sender: FDA-Public Use
  Company Number: US-JNJCH-2010018658

PATIENT
  Age: 55 Year
  Sex: Female
  Weight: 63.5 kg

DRUGS (2)
  1. LISTERINE WHITENING PRE-BRUSH RINSE [Suspect]
     Indication: DENTAL CARE
     Dosage: TEXT:ABOUT A COUPLE OF TABLESPOONS ONCE DAILY
     Route: 048
     Dates: start: 20100707, end: 20100711
  2. STOMATOLOGICALS, MOUTH PREPARATIONS [Suspect]
     Indication: PRODUCT USED FOR UNKNOWN INDICATION
     Dosage: TEXT:ONCE DAILY
     Route: 048

REACTIONS (3)
  - APPLICATION SITE BURN [None]
  - MEDICATION ERROR [None]
  - ORAL MUCOSAL EXFOLIATION [None]
